FAERS Safety Report 21537419 (Version 1)
Quarter: 2022Q4

REPORT INFORMATION
  Report Type: Spontaneous
  Country: IT (occurrence: IT)
  Receive Date: 20221101
  Receipt Date: 20221101
  Transmission Date: 20230112
  Serious: Yes (Disabling, Other)
  Sender: FDA-Public Use
  Company Number: IT-METUCHEN-STN-2022-0148

PATIENT
  Age: 69 Year
  Sex: Male
  Weight: 80 kg

DRUGS (2)
  1. STENDRA [Suspect]
     Active Substance: AVANAFIL
     Indication: Erectile dysfunction
     Route: 048
  2. STENDRA [Suspect]
     Active Substance: AVANAFIL
     Route: 048

REACTIONS (3)
  - Vision blurred [Unknown]
  - Blindness [Unknown]
  - Visual impairment [Unknown]
